FAERS Safety Report 4751131-8 (Version None)
Quarter: 2005Q3

REPORT INFORMATION
  Report Type: 
  Country: None (occurrence: None)
  Receive Date: 20050822
  Receipt Date: 20050810
  Transmission Date: 20060218
  Serious: Yes (Other)
  Sender: FDA-Public Use
  Company Number: 2005114062

PATIENT
  Age: 45 Year
  Sex: Female
  Weight: 65 kg

DRUGS (2)
  1. LYRICA [Suspect]
     Indication: PAIN IN EXTREMITY
     Dosage: 150 MG (75 MG, 2 IN 1 D), ORAL
     Route: 048
     Dates: start: 20050722, end: 20050801
  2. GABAPENTIN [Concomitant]

REACTIONS (2)
  - ARTHRALGIA [None]
  - JOINT SWELLING [None]
